FAERS Safety Report 19503394 (Version 1)
Quarter: 2021Q3

REPORT INFORMATION
  Report Type: Report from Study
  Country: US (occurrence: US)
  Receive Date: 20210707
  Receipt Date: 20210707
  Transmission Date: 20211014
  Serious: Yes (Other)
  Sender: FDA-Public Use
  Company Number: US-MYLANLABS-2021M1009749

PATIENT
  Age: 46 Year
  Sex: Male
  Weight: 86 kg

DRUGS (6)
  1. FLOMAX [Concomitant]
     Active Substance: TAMSULOSIN HYDROCHLORIDE
     Dosage: UNK
  2. WHISPERJECT? AUTOINJECTOR [Suspect]
     Active Substance: DEVICE
     Indication: RELAPSING-REMITTING MULTIPLE SCLEROSIS
  3. WHISPERJECT? AUTOINJECTOR [Suspect]
     Active Substance: DEVICE
     Indication: MULTIPLE SCLEROSIS
     Dosage: UNK
  4. VALSARTAN. [Concomitant]
     Active Substance: VALSARTAN
     Indication: HYPERTENSION
     Dosage: UNK
  5. GLATIRAMER ACETATE INJECTION [Suspect]
     Active Substance: GLATIRAMER ACETATE
     Indication: MULTIPLE SCLEROSIS
     Dosage: 40 MILLIGRAM, 3XW
     Route: 058
     Dates: start: 20210208
  6. GLATIRAMER ACETATE INJECTION [Suspect]
     Active Substance: GLATIRAMER ACETATE
     Indication: RELAPSING-REMITTING MULTIPLE SCLEROSIS

REACTIONS (12)
  - Needle issue [Unknown]
  - Drug ineffective [Unknown]
  - Incorrect route of product administration [Unknown]
  - Gait disturbance [Unknown]
  - Injection site pain [Recovered/Resolved]
  - Injection site erythema [Unknown]
  - Injection site swelling [Unknown]
  - Injection site mass [Unknown]
  - Muscle spasms [Unknown]
  - Injection site pruritus [Unknown]
  - Device issue [Recovered/Resolved]
  - Dizziness [Unknown]

NARRATIVE: CASE EVENT DATE: 20210208
